FAERS Safety Report 19104956 (Version 9)
Quarter: 2025Q2

REPORT INFORMATION
  Report Type: Report from Study
  Country: BR (occurrence: BR)
  Receive Date: 20210407
  Receipt Date: 20250404
  Transmission Date: 20250716
  Serious: Yes (Life-Threatening, Hospitalization, Disabling, Other)
  Sender: TAKEDA
  Company Number: BR-TAKEDA-BR202026859

PATIENT
  Sex: Male
  Weight: 70 kg

DRUGS (10)
  1. HEMO-8R [Suspect]
     Active Substance: ANTIHEMOPHILIC FACTOR, HUMAN RECOMBINANT
     Indication: Factor VIII deficiency
  2. HEMO-8R [Suspect]
     Active Substance: ANTIHEMOPHILIC FACTOR, HUMAN RECOMBINANT
  3. HEMO-8R [Suspect]
     Active Substance: ANTIHEMOPHILIC FACTOR, HUMAN RECOMBINANT
     Dosage: 1000 INTERNATIONAL UNIT, 2/WEEK
  4. HEMO-8R [Suspect]
     Active Substance: ANTIHEMOPHILIC FACTOR, HUMAN RECOMBINANT
  5. HEMO-8R [Suspect]
     Active Substance: ANTIHEMOPHILIC FACTOR, HUMAN RECOMBINANT
  6. HEMO-8R [Suspect]
     Active Substance: ANTIHEMOPHILIC FACTOR, HUMAN RECOMBINANT
  7. HEMO-8R [Suspect]
     Active Substance: ANTIHEMOPHILIC FACTOR, HUMAN RECOMBINANT
  8. Neozine [Concomitant]
     Indication: Sleep disorder
  9. NOVALGINA [Concomitant]
     Active Substance: ACETAMINOPHEN\CAFFEINE
     Indication: Arthralgia
  10. DIPYRONE [Concomitant]
     Active Substance: DIPYRONE
     Indication: Arthralgia

REACTIONS (42)
  - Intentional self-injury [Recovered/Resolved]
  - Skin laceration [Recovered/Resolved]
  - Haemorrhage [Recovered/Resolved]
  - Epilepsy [Unknown]
  - Injection site thrombosis [Unknown]
  - Gait disturbance [Not Recovered/Not Resolved]
  - Syncope [Unknown]
  - Nephrolithiasis [Unknown]
  - Seizure [Unknown]
  - Gun shot wound [Unknown]
  - Haematemesis [Recovered/Resolved]
  - Monoplegia [Unknown]
  - Drug abuser [Recovering/Resolving]
  - Femur fracture [Unknown]
  - Blood loss anaemia [Recovered/Resolved]
  - Mental disorder [Unknown]
  - Muscle atrophy [Recovered/Resolved]
  - Burning sensation [Unknown]
  - Pain [Unknown]
  - Agitation [Unknown]
  - Crying [Unknown]
  - Restlessness [Unknown]
  - Irritability [Recovering/Resolving]
  - Refusal of treatment by patient [Unknown]
  - Injury [Unknown]
  - Inappropriate schedule of product administration [Unknown]
  - Incorrect dose administered [Unknown]
  - Incorrect drug administration rate [Unknown]
  - Wrong technique in product usage process [Unknown]
  - Learning disorder [Unknown]
  - Hunger [Unknown]
  - Poor venous access [Unknown]
  - Treatment noncompliance [Unknown]
  - Product use complaint [Unknown]
  - Nervousness [Unknown]
  - Pain in extremity [Recovering/Resolving]
  - Neck pain [Not Recovered/Not Resolved]
  - Insomnia [Recovering/Resolving]
  - Cerebral disorder [Unknown]
  - Weight decreased [Recovering/Resolving]
  - Nervous system disorder [Recovered/Resolved]
  - Arthralgia [Recovering/Resolving]

NARRATIVE: CASE EVENT DATE: 20150101
